FAERS Safety Report 11938197 (Version 1)
Quarter: 2016Q1

REPORT INFORMATION
  Report Type: Spontaneous
  Country: US (occurrence: US)
  Receive Date: 20160122
  Receipt Date: 20160122
  Transmission Date: 20160526
  Serious: No
  Sender: FDA-Public Use
  Company Number: US-009507513-1601USA004951

PATIENT
  Age: 32 Year
  Sex: Female
  Weight: 58.96 kg

DRUGS (1)
  1. NUVARING [Suspect]
     Active Substance: ETHINYL ESTRADIOL\ETONOGESTREL
     Indication: CONTRACEPTION
     Dosage: 1 RING/ 3 WEEKS IN, 1 WEEK OUT
     Route: 067
     Dates: start: 201001

REACTIONS (2)
  - Menstruation normal [Recovered/Resolved]
  - Menstruation irregular [Unknown]

NARRATIVE: CASE EVENT DATE: 201001
